FAERS Safety Report 7583710-7 (Version None)
Quarter: 2011Q2

REPORT INFORMATION
  Report Type: 
  Country: None (occurrence: None)
  Receive Date: 20110630
  Receipt Date: 20110616
  Transmission Date: 20111010
  Serious: Yes (Other)
  Sender: FDA-Public Use
  Company Number: B0728825A

PATIENT
  Age: 8 Year

DRUGS (2)
  1. BUSULFAN [Suspect]
     Route: 065
  2. CYCLOPHOSPHAMIDE [Suspect]
     Indication: BONE MARROW CONDITIONING REGIMEN
     Dosage: 50MGK PER DAY
     Route: 065

REACTIONS (1)
  - TOOTH HYPOPLASIA [None]
